FAERS Safety Report 4280556-2 (Version None)
Quarter: 2004Q1

REPORT INFORMATION
  Report Type: 
  Country: None (occurrence: None)
  Receive Date: 20040127
  Receipt Date: 20040114
  Transmission Date: 20041129
  Serious: Yes (Hospitalization, Other)
  Sender: FDA-Public Use
  Company Number: 2004002989

PATIENT
  Weight: 1.55 kg

DRUGS (1)
  1. LITHIUM CARBONATE [Suspect]
     Indication: BIPOLAR DISORDER

REACTIONS (13)
  - DIABETES INSIPIDUS [None]
  - DRUG EXPOSURE DURING PREGNANCY [None]
  - ELECTROCARDIOGRAM QRS COMPLEX [None]
  - ERYTHEMA [None]
  - EYELID PTOSIS [None]
  - HAEMANGIOMA [None]
  - HYPOKINESIA [None]
  - MOTOR DYSFUNCTION [None]
  - NEONATAL RESPIRATORY DISTRESS SYNDROME [None]
  - SKIN LESION [None]
  - SUPRAVENTRICULAR TACHYCARDIA [None]
  - URINE OSMOLARITY DECREASED [None]
  - WEIGHT DECREASED [None]
